FAERS Safety Report 16379402 (Version 4)
Quarter: 2020Q1

REPORT INFORMATION
  Report Type: Spontaneous
  Country: BR (occurrence: BR)
  Receive Date: 20190531
  Receipt Date: 20200217
  Transmission Date: 20200409
  Serious: Yes (Hospitalization)
  Sender: FDA-Public Use
  Company Number: BR-GLAXOSMITHKLINE-BR2018GSK197781

PATIENT
  Sex: Female
  Weight: 80 kg

DRUGS (2)
  1. BENLYSTA [Suspect]
     Active Substance: BELIMUMAB
     Indication: SYSTEMIC LUPUS ERYTHEMATOSUS
     Dosage: 750 MG, UNK
     Dates: start: 20181018
  2. BENLYSTA [Suspect]
     Active Substance: BELIMUMAB
     Dosage: 760 MG, UNK

REACTIONS (6)
  - Platelet count decreased [Unknown]
  - Pruritus [Recovering/Resolving]
  - Drug ineffective [Unknown]
  - Skin disorder [Recovering/Resolving]
  - Weight fluctuation [Unknown]
  - Product use issue [Unknown]
